FAERS Safety Report 15851833 (Version 2)
Quarter: 2019Q1

REPORT INFORMATION
  Report Type: Spontaneous
  Country: FR (occurrence: FR)
  Receive Date: 20190122
  Receipt Date: 20190201
  Transmission Date: 20190417
  Serious: Yes (Life-Threatening)
  Sender: FDA-Public Use
  Company Number: FR-B.I. PHARMACEUTICALS,INC./RIDGEFIELD-2006-DE-04070BY

PATIENT
  Age: 86 Year
  Sex: Male

DRUGS (4)
  1. PRITOR (TELMISARTAN) [Suspect]
     Active Substance: TELMISARTAN
     Indication: UNEVALUABLE EVENT
     Route: 048
     Dates: start: 20051212, end: 20060203
  2. PLAVIX [Concomitant]
     Active Substance: CLOPIDOGREL BISULFATE
     Indication: UNEVALUABLE EVENT
     Route: 048
     Dates: start: 20051213
  3. VASTAREL [Concomitant]
     Active Substance: TRIMETAZIDINE DIHYDROCHLORIDE
     Indication: UNEVALUABLE EVENT
     Route: 048
     Dates: start: 20051213, end: 20060203
  4. GINKOGINK [Concomitant]
     Indication: UNEVALUABLE EVENT
     Route: 048
     Dates: start: 20030307, end: 20060203

REACTIONS (5)
  - Lung infection [Recovered/Resolved]
  - Hyperkalaemia [Recovered/Resolved with Sequelae]
  - Dehydration [Recovered/Resolved]
  - Acute kidney injury [Recovered/Resolved with Sequelae]
  - Electrocardiogram abnormal [Recovered/Resolved]

NARRATIVE: CASE EVENT DATE: 20060202
